FAERS Safety Report 23557519 (Version 1)
Quarter: 2024Q1

REPORT INFORMATION
  Report Type: Spontaneous
  Country: US (occurrence: US)
  Receive Date: 20240223
  Receipt Date: 20240223
  Transmission Date: 20240409
  Serious: Yes (Other)
  Sender: FDA-Public Use
  Company Number: US-002147023-NVSC2022US121777

PATIENT
  Age: 77 Year
  Sex: Male

DRUGS (3)
  1. CARVEDILOL [Suspect]
     Active Substance: CARVEDILOL
     Indication: Product used for unknown indication
     Dosage: UNK
     Route: 065
  2. ENTRESTO [Suspect]
     Active Substance: SACUBITRIL\VALSARTAN
     Indication: Product used for unknown indication
     Dosage: 50 MG, BID (24/26 MG)
     Route: 048
     Dates: start: 202205
  3. LISINOPRIL [Suspect]
     Active Substance: LISINOPRIL
     Indication: Cardiac disorder
     Dosage: UNK
     Route: 065

REACTIONS (7)
  - Silent myocardial infarction [Unknown]
  - Ejection fraction decreased [Unknown]
  - COVID-19 [Unknown]
  - Blood iron decreased [Unknown]
  - Dyspnoea [Unknown]
  - Limb discomfort [Unknown]
  - Cough [Unknown]

NARRATIVE: CASE EVENT DATE: 20220521
